FAERS Safety Report 9414916 (Version 1)
Quarter: 2013Q3

REPORT INFORMATION
  Report Type: Spontaneous
  Country: US (occurrence: US)
  Receive Date: 20130723
  Receipt Date: 20130723
  Transmission Date: 20140515
  Serious: No
  Sender: FDA-Public Use
  Company Number: US-009507513-1307USA007076

PATIENT
  Age: 56 Year
  Sex: Female

DRUGS (6)
  1. VICTRELIS [Suspect]
     Indication: HEPATITIS C
     Dosage: 800 MG, Q8H
     Route: 048
     Dates: start: 20130702
  2. REBETOL [Suspect]
     Indication: HEPATITIS C
     Dosage: UNK
     Route: 048
     Dates: start: 20130603
  3. PEGASYS [Suspect]
     Indication: HEPATITIS C
     Dosage: UNK
     Dates: start: 20130603
  4. KLONOPIN [Concomitant]
  5. SYNTHROID [Concomitant]
  6. VITAMINS (UNSPECIFIED) [Concomitant]

REACTIONS (13)
  - Anxiety [Unknown]
  - Insomnia [Unknown]
  - Aphagia [Unknown]
  - Dyspepsia [Unknown]
  - Psychomotor hyperactivity [Unknown]
  - Migraine [Unknown]
  - Blood calcium decreased [Unknown]
  - Eructation [Unknown]
  - Chest discomfort [Unknown]
  - Asthenia [Unknown]
  - Fatigue [Unknown]
  - Dysgeusia [Unknown]
  - Nausea [Unknown]
